FAERS Safety Report 10347412 (Version 1)
Quarter: 2014Q3

REPORT INFORMATION
  Report Type: Spontaneous
  Country: US (occurrence: None)
  Receive Date: 20140725
  Receipt Date: 20140725
  Transmission Date: 20150326
  Serious: Yes (Other)
  Sender: FDA-Public Use
  Company Number: 140267

PATIENT
  Sex: Male

DRUGS (1)
  1. PEG-3350 AND ELECTROLYTES [Suspect]
     Active Substance: POLYETHYLENE GLYCOL 3350\POTASSIUM CHLORIDE\SODIUM BICARBONATE\SODIUM CHLORIDE\SODIUM SULFATE\SODIUM SULFATE ANHYDROUS
     Indication: COLONOSCOPY
     Dosage: 8 OZ 1X PO
     Route: 048
     Dates: start: 20140716, end: 20140716

REACTIONS (5)
  - Throat tightness [None]
  - Sneezing [None]
  - Lip swelling [None]
  - Pruritus generalised [None]
  - Urticaria [None]

NARRATIVE: CASE EVENT DATE: 20140716
